FAERS Safety Report 16071326 (Version 6)
Quarter: 2019Q4

REPORT INFORMATION
  Report Type: Spontaneous
  Country: US (occurrence: US)
  Receive Date: 20190314
  Receipt Date: 20191209
  Transmission Date: 20200122
  Serious: Yes (Other)
  Sender: FDA-Public Use
  Company Number: US-PFIZER INC-2018505951

PATIENT
  Age: 74 Year
  Sex: Female
  Weight: 64 kg

DRUGS (16)
  1. VITAMIN D [Concomitant]
     Active Substance: VITAMIN D NOS
     Indication: SUPPLEMENTATION THERAPY
     Dosage: 50000 IU, (EVERY 2 WEEKS)
     Route: 048
  2. PROLIA [Concomitant]
     Active Substance: DENOSUMAB
     Indication: OSTEOPOROSIS
     Dosage: UNK (ONLY EVERY 6 MONTHS)
  3. PROLIA [Concomitant]
     Active Substance: DENOSUMAB
     Dosage: UNK (INJECTION TWICE A YEAR)
     Dates: start: 201709
  4. VITAMIN D2 [Concomitant]
     Active Substance: ERGOCALCIFEROL
     Indication: VITAMIN SUPPLEMENTATION
     Dosage: UNK (1.25 MG OR 50,000 UNIT)
     Route: 048
  5. VITAMIN D [Concomitant]
     Active Substance: VITAMIN D NOS
     Indication: MINERAL SUPPLEMENTATION
  6. SUMATRIPTAN. [Concomitant]
     Active Substance: SUMATRIPTAN
     Indication: MIGRAINE
     Dosage: 50 MG, AS NEEDED (FOR HEADACHE)
     Route: 048
  7. EXEMESTANE. [Concomitant]
     Active Substance: EXEMESTANE
     Indication: BREAST CANCER
     Dosage: 25 MG, DAILY
     Route: 048
  8. EXEMESTANE. [Concomitant]
     Active Substance: EXEMESTANE
     Indication: ANTIOESTROGEN THERAPY
  9. SUMATRIPTAN. [Concomitant]
     Active Substance: SUMATRIPTAN
     Indication: HEADACHE
  10. SYNTHROID [Concomitant]
     Active Substance: LEVOTHYROXINE SODIUM
     Dosage: 125 UG, 1X/DAY
     Route: 048
  11. VITAMIN D [Concomitant]
     Active Substance: VITAMIN D NOS
     Indication: OSTEOPOROSIS
     Dosage: 1.25 MG, UNK(1 CAPSULE BY MOUTH EVERY OTHER WEEK)
     Route: 048
  12. XALKORI [Suspect]
     Active Substance: CRIZOTINIB
     Indication: NON-SMALL CELL LUNG CANCER
     Dosage: 250 MG, 2X/DAY (ONCE IN THE MORNING AND ONCE A NIGHT)
     Route: 048
     Dates: start: 20181209
  13. TUMS [Concomitant]
     Active Substance: CALCIUM CARBONATE
     Indication: MINERAL SUPPLEMENTATION
     Dosage: UNK, 1X/DAY
     Route: 048
  14. SYNTHROID [Concomitant]
     Active Substance: LEVOTHYROXINE SODIUM
     Indication: THYROID DISORDER
     Dosage: 0.125 UG, (ONCE DAILY FOR SIX DAYS A WEEK)
     Route: 048
  15. CENTRUM SILVER [Concomitant]
     Active Substance: MINERALS\VITAMINS
     Indication: SUPPLEMENTATION THERAPY
     Dosage: 1 DF, 1X/DAY
     Route: 048
  16. VITAMIN D [Concomitant]
     Active Substance: VITAMIN D NOS
     Indication: VITAMIN SUPPLEMENTATION

REACTIONS (10)
  - Cough [Unknown]
  - Blood thyroid stimulating hormone increased [Not Recovered/Not Resolved]
  - Feeding disorder [Unknown]
  - Blood test abnormal [Unknown]
  - Viral infection [Unknown]
  - Paralysis [Unknown]
  - Off label use [Unknown]
  - Product use in unapproved indication [Unknown]
  - Vocal cord disorder [Not Recovered/Not Resolved]
  - Oesophageal irritation [Unknown]

NARRATIVE: CASE EVENT DATE: 2019
